FAERS Safety Report 5673285-1 (Version None)
Quarter: 2008Q1

REPORT INFORMATION
  Report Type: 
  Country: None (occurrence: None)
  Receive Date: 20080317
  Receipt Date: 20080303
  Transmission Date: 20080703
  Serious: Yes (Hospitalization)
  Sender: FDA-Public Use
  Company Number: DSJ-2008-02137

PATIENT
  Age: 81 Year
  Sex: Female
  Weight: 51 kg

DRUGS (11)
  1. OLMESARTAN MEDOXOMIL [Suspect]
     Indication: HYPERTENSION
     Dosage: 40 MG (20 MG, 2 IN 1 D), PER ORAL
     Route: 048
     Dates: start: 20071126, end: 20071219
  2. LASIX [Concomitant]
  3. ASPIRIN [Concomitant]
  4. CARDENALIN (DOXASOZIN MESILATE) [Concomitant]
  5. NORVASC [Concomitant]
  6. DIGOXIN [Concomitant]
  7. CIBENOL (CIBENZOLINE SUCCINATE) [Concomitant]
  8. FAMOTIDINE [Concomitant]
  9. KREMEZIN (CHARCOAL, ACTIVATED) [Concomitant]
  10. JUSO (SODIUM BICARBONATE) [Concomitant]
  11. ISOSORBIDE DINITRATE [Concomitant]

REACTIONS (1)
  - GENERALISED OEDEMA [None]
